FAERS Safety Report 23418267 (Version 2)
Quarter: 2024Q1

REPORT INFORMATION
  Report Type: Report from Study
  Country: EG (occurrence: EG)
  Receive Date: 20240118
  Receipt Date: 20240131
  Transmission Date: 20240410
  Serious: Yes (Other)
  Sender: FDA-Public Use
  Company Number: EG-BIOGEN-2024BI01245450

PATIENT
  Age: 35 Year
  Sex: Female
  Weight: 80 kg

DRUGS (8)
  1. TYSABRI [Suspect]
     Active Substance: NATALIZUMAB
     Indication: Multiple sclerosis
     Route: 050
     Dates: start: 202301
  2. TYSABRI [Suspect]
     Active Substance: NATALIZUMAB
     Dosage: EVERY 1.5 MONTHS
     Route: 050
     Dates: start: 202303, end: 202309
  3. TYSABRI [Suspect]
     Active Substance: NATALIZUMAB
     Dosage: EVERY 1.5 MONTHS
     Route: 050
     Dates: start: 20231116
  4. TYSABRI [Suspect]
     Active Substance: NATALIZUMAB
     Dosage: EVERY 1.5 MONTHS
     Route: 050
     Dates: start: 202301, end: 202309
  5. MINERALS\VITAMINS [Concomitant]
     Active Substance: MINERALS\VITAMINS
     Indication: Vitamin supplementation
     Route: 050
     Dates: start: 202303
  6. BENFOTIAMINE\CYANOCOBALAMIN\PYRIDOXINE HYDROCHLORIDE [Concomitant]
     Active Substance: BENFOTIAMINE\CYANOCOBALAMIN\PYRIDOXINE HYDROCHLORIDE
     Indication: Multiple sclerosis
     Route: 050
     Dates: start: 202301
  7. FOLIC ACID [Concomitant]
     Active Substance: FOLIC ACID
     Indication: Vitamin supplementation
     Route: 050
     Dates: start: 202303
  8. Vitamin D AND CALCIUM [Concomitant]
     Indication: Multiple sclerosis
     Route: 050
     Dates: start: 202301

REACTIONS (3)
  - Caesarean section [Recovered/Resolved]
  - Maternal exposure during pregnancy [Recovered/Resolved]
  - Oedema peripheral [Recovered/Resolved]

NARRATIVE: CASE EVENT DATE: 20230222
